FAERS Safety Report 4661355-6 (Version None)
Quarter: 2005Q2

REPORT INFORMATION
  Report Type: 
  Country: None (occurrence: None)
  Receive Date: 20050512
  Receipt Date: 20050503
  Transmission Date: 20051028
  Serious: Yes (Death, Hospitalization, Other)
  Sender: FDA-Public Use
  Company Number: 05-05-0732

PATIENT
  Age: 76 Year
  Sex: Male

DRUGS (10)
  1. FLUCONAZOLE [Suspect]
     Indication: GRAFT INFECTION
     Dosage: 150MG OD
  2. ATORVASTATIN CALCIUM [Suspect]
     Indication: BLOOD CHOLESTEROL
     Dosage: 40MG OD
  3. BISOPROLOL [Concomitant]
  4. DIGOXIN [Concomitant]
  5. WARFARIN SODIUM [Concomitant]
  6. DOXYCYCLINE [Concomitant]
  7. PREDNISONE TAB [Concomitant]
  8. PRAVASTATIN [Concomitant]
  9. FUSIDIC ACID [Concomitant]
  10. ESOMEPRAZOLE [Concomitant]

REACTIONS (24)
  - AORTIC ANEURYSM [None]
  - CARDIOMEGALY [None]
  - DRUG EFFECT DECREASED [None]
  - DYSPNOEA [None]
  - FATIGUE [None]
  - GENERAL PHYSICAL HEALTH DETERIORATION [None]
  - GRAFT INFECTION [None]
  - HAEMODIALYSIS [None]
  - HAEMOGLOBIN DECREASED [None]
  - HEPARIN-INDUCED THROMBOCYTOPENIA [None]
  - HYPOTENSION [None]
  - INTERNATIONAL NORMALISED RATIO INCREASED [None]
  - LOW DENSITY LIPOPROTEIN INCREASED [None]
  - MALAISE [None]
  - MULTI-ORGAN FAILURE [None]
  - MYOGLOBIN BLOOD INCREASED [None]
  - OLIGURIA [None]
  - PNEUMONIA [None]
  - PO2 DECREASED [None]
  - POST PROCEDURAL COMPLICATION [None]
  - PULMONARY CONGESTION [None]
  - PYREXIA [None]
  - RENAL FAILURE [None]
  - RHABDOMYOLYSIS [None]
